FAERS Safety Report 21323057 (Version 1)
Quarter: 2022Q3

REPORT INFORMATION
  Report Type: Report from Study
  Country: JP (occurrence: JP)
  Receive Date: 20220912
  Receipt Date: 20220912
  Transmission Date: 20221027
  Serious: Yes (Other)
  Sender: FDA-Public Use
  Company Number: JP-UCBJ-CD202209064UCBPHAPROD

PATIENT
  Age: 41 Year
  Sex: Male
  Weight: 86 kg

DRUGS (5)
  1. CIMZIA [Suspect]
     Active Substance: CERTOLIZUMAB PEGOL
     Indication: Psoriatic arthropathy
     Route: 058
     Dates: start: 20210512, end: 20220510
  2. RINDERON VG [Concomitant]
     Active Substance: BETAMETHASONE VALERATE\GENTAMICIN SULFATE
     Indication: Psoriatic arthropathy
     Route: 062
     Dates: start: 2015
  3. MOMETASONE [Concomitant]
     Active Substance: MOMETASONE
     Indication: Psoriatic arthropathy
     Route: 062
     Dates: start: 2015
  4. BETAMETHASONE BUTYRATE PROPIONATE\MAXACALCITOL [Concomitant]
     Active Substance: BETAMETHASONE BUTYRATE PROPIONATE\MAXACALCITOL
     Indication: Psoriatic arthropathy
     Route: 062
     Dates: start: 20180601
  5. DEXAMETHASONE DIPROPIONATE [Concomitant]
     Active Substance: DEXAMETHASONE DIPROPIONATE
     Indication: Psoriatic arthropathy
     Route: 062
     Dates: start: 2016

REACTIONS (1)
  - Interstitial lung disease [Unknown]

NARRATIVE: CASE EVENT DATE: 20220501
